FAERS Safety Report 7767682-8 (Version None)
Quarter: 2011Q3

REPORT INFORMATION
  Report Type: 
  Country: None (occurrence: None)
  Receive Date: 20110922
  Receipt Date: 20110920
  Transmission Date: 20111222
  Serious: Yes (Hospitalization)
  Sender: FDA-Public Use
  Company Number: US-PFIZER INC-2011224001

PATIENT
  Age: 84 Year
  Sex: Female

DRUGS (3)
  1. LETAIRIS [Suspect]
     Dosage: 10 MG, UNK
     Route: 048
     Dates: start: 20091105
  2. TYVASO [Concomitant]
     Dosage: UNK
  3. CELEBREX [Suspect]
     Dosage: NI

REACTIONS (1)
  - HAEMORRHAGE [None]
